FAERS Safety Report 11926978 (Version 1)
Quarter: 2016Q1

REPORT INFORMATION
  Report Type: Report from Study
  Country: US (occurrence: US)
  Receive Date: 20160119
  Receipt Date: 20160119
  Transmission Date: 20160526
  Serious: Yes (Other)
  Sender: FDA-Public Use
  Company Number: US-SA-2015SA016802

PATIENT
  Age: 56 Year
  Sex: Female

DRUGS (5)
  1. LEMTRADA [Suspect]
     Active Substance: ALEMTUZUMAB
     Indication: MULTIPLE SCLEROSIS
     Route: 041
     Dates: start: 20150126, end: 20150126
  2. ZYRTEC [Concomitant]
     Active Substance: CETIRIZINE HYDROCHLORIDE
  3. ZANTAC [Concomitant]
     Active Substance: RANITIDINE HYDROCHLORIDE
  4. LEMTRADA [Suspect]
     Active Substance: ALEMTUZUMAB
     Indication: MULTIPLE SCLEROSIS
     Route: 041
     Dates: start: 20150202, end: 20150202
  5. LEMTRADA [Suspect]
     Active Substance: ALEMTUZUMAB
     Indication: MULTIPLE SCLEROSIS
     Route: 041
     Dates: start: 20150128, end: 20150130

REACTIONS (28)
  - Hypoaesthesia [Not Recovered/Not Resolved]
  - Fatigue [Recovering/Resolving]
  - Abasia [Not Recovered/Not Resolved]
  - Urinary tract infection [Recovering/Resolving]
  - Multiple sclerosis relapse [Recovering/Resolving]
  - Muscular weakness [Not Recovered/Not Resolved]
  - Memory impairment [Not Recovered/Not Resolved]
  - Vertigo [Not Recovered/Not Resolved]
  - Burning sensation [Unknown]
  - Pain [Not Recovered/Not Resolved]
  - Toxicity to various agents [Unknown]
  - Ill-defined disorder [Unknown]
  - Anaemia [Unknown]
  - Dehydration [Unknown]
  - Condition aggravated [Unknown]
  - Gait disturbance [Recovering/Resolving]
  - Sleep apnoea syndrome [Unknown]
  - Fall [Unknown]
  - Paralysis [Unknown]
  - Asthenia [Recovering/Resolving]
  - Neuralgia [Recovering/Resolving]
  - Apnoea [Unknown]
  - Gait disturbance [Not Recovered/Not Resolved]
  - Optic neuritis [Recovering/Resolving]
  - Depression [Not Recovered/Not Resolved]
  - Malaise [Unknown]
  - Pruritus [Unknown]
  - Asthma [Not Recovered/Not Resolved]

NARRATIVE: CASE EVENT DATE: 2015
